FAERS Safety Report 14120480 (Version 1)
Quarter: 2017Q4

REPORT INFORMATION
  Report Type: Spontaneous
  Country: US (occurrence: US)
  Receive Date: 20171024
  Receipt Date: 20171024
  Transmission Date: 20180321
  Serious: Yes (Other)
  Sender: FDA-Public Use
  Company Number: US-MYLANLABS-2017M1065812

PATIENT
  Age: 61 Year
  Sex: Female

DRUGS (3)
  1. HYDROXYCHLOROQUINE [Suspect]
     Active Substance: HYDROXYCHLOROQUINE
     Indication: ARTHRALGIA
     Dosage: 400 MG/DAY AND AFTER ONE WEEK DECREASED TO 200 MG/DAY
     Route: 065
     Dates: start: 201501, end: 201504
  2. HYDROXYCHLOROQUINE [Interacting]
     Active Substance: HYDROXYCHLOROQUINE
     Dosage: DECREASED TO 200 MG/DAY
     Route: 065
     Dates: start: 201501, end: 201504
  3. IBUPROFEN. [Interacting]
     Active Substance: IBUPROFEN
     Indication: ARTHRALGIA
     Dosage: TAKEN AS NEEDED PRIOR TO HYDROXYCHLOROQUINE THERAPY AND LATER TAKEN THROUGHOUT
     Route: 065

REACTIONS (4)
  - Retinopathy [Not Recovered/Not Resolved]
  - Toxicity to various agents [Not Recovered/Not Resolved]
  - Drug interaction [Not Recovered/Not Resolved]
  - Dizziness [Unknown]
